FAERS Safety Report 16126681 (Version 2)
Quarter: 2019Q2

REPORT INFORMATION
  Report Type: Report from Study
  Country: CA (occurrence: CA)
  Receive Date: 20190328
  Receipt Date: 20190503
  Transmission Date: 20190711
  Serious: Yes (Other)
  Sender: FDA-Public Use
  Company Number: CA-GLAXOSMITHKLINE-CA2018GSK195121

PATIENT
  Age: 67 Year
  Sex: Female

DRUGS (6)
  1. MEPOLIZUMAB [Suspect]
     Active Substance: MEPOLIZUMAB
     Dosage: 100 MG, Z,MONTHLY
     Route: 042
  2. MEPOLIZUMAB [Suspect]
     Active Substance: MEPOLIZUMAB
     Dosage: 100 MG, Z, MONTHLY
     Route: 042
  3. MEPOLIZUMAB [Suspect]
     Active Substance: MEPOLIZUMAB
     Dosage: 100 MG, Z, MONTHLY
     Route: 042
  4. MEPOLIZUMAB [Suspect]
     Active Substance: MEPOLIZUMAB
     Indication: ASTHMA
     Dosage: 100 MG, Z,MONTHLY
     Route: 042
  5. MEPOLIZUMAB [Suspect]
     Active Substance: MEPOLIZUMAB
     Dosage: 100 MG, Z, MONTHLY
     Route: 042
  6. MEPOLIZUMAB [Suspect]
     Active Substance: MEPOLIZUMAB
     Dosage: 100 MG, Z, MONTHLY
     Route: 042

REACTIONS (18)
  - Erythema [Unknown]
  - Productive cough [Unknown]
  - Nasal congestion [Unknown]
  - Influenza [Unknown]
  - Asthma [Unknown]
  - Bronchial obstruction [Unknown]
  - Wound haemorrhage [Unknown]
  - Choking [Unknown]
  - Malaise [Unknown]
  - Sputum discoloured [Unknown]
  - Cough [Not Recovered/Not Resolved]
  - Dyspnoea exertional [Recovered/Resolved]
  - Skin disorder [Unknown]
  - Increased viscosity of upper respiratory secretion [Unknown]
  - Increased bronchial secretion [Unknown]
  - Therapeutic product effect incomplete [Unknown]
  - Paronychia [Recovered/Resolved]
  - Scab [Unknown]

NARRATIVE: CASE EVENT DATE: 201812
